FAERS Safety Report 17644019 (Version 1)
Quarter: 2020Q2

REPORT INFORMATION
  Report Type: Spontaneous
  Country: US (occurrence: US)
  Receive Date: 20200407
  Receipt Date: 20200407
  Transmission Date: 20200713
  Serious: Yes (Hospitalization)
  Sender: FDA-Public Use
  Company Number: None

PATIENT
  Sex: Female

DRUGS (1)
  1. HUMIRA [Suspect]
     Active Substance: ADALIMUMAB
     Indication: PRODUCT USED FOR UNKNOWN INDICATION
     Dosage: ?          OTHER DOSE:1 PEN;OTHER FREQUENCY:QOWK;?
     Route: 058
     Dates: start: 20190827

REACTIONS (4)
  - Abdominal pain [None]
  - Diarrhoea [None]
  - Pyrexia [None]
  - Cholecystectomy [None]
